FAERS Safety Report 16657429 (Version 3)
Quarter: 2019Q3

REPORT INFORMATION
  Report Type: Spontaneous
  Country: US (occurrence: US)
  Receive Date: 20190801
  Receipt Date: 20190916
  Transmission Date: 20191004
  Serious: Yes (Other)
  Sender: FDA-Public Use
  Company Number: US-SA-2019SA205090

PATIENT
  Age: 62 Year
  Sex: Female

DRUGS (1)
  1. TOUJEO [Suspect]
     Active Substance: INSULIN GLARGINE
     Indication: TYPE 1 DIABETES MELLITUS
     Dosage: 80 U, QD
     Route: 065

REACTIONS (10)
  - Hypoglycaemia [Unknown]
  - Device operational issue [Unknown]
  - Abdominal discomfort [Unknown]
  - Thirst [Unknown]
  - Pollakiuria [Unknown]
  - Influenza [Unknown]
  - Product dose omission [Unknown]
  - Blood glucose increased [Unknown]
  - Dyspepsia [Unknown]
  - Fungal infection [Unknown]
